FAERS Safety Report 17681162 (Version 1)
Quarter: 2020Q2

REPORT INFORMATION
  Report Type: Report from Study
  Country: JP (occurrence: JP)
  Receive Date: 20200417
  Receipt Date: 20200417
  Transmission Date: 20200714
  Serious: Yes (Hospitalization)
  Sender: FDA-Public Use
  Company Number: JP-CELGENEUS-JPN-20200405025

PATIENT
  Age: 53 Year
  Sex: Female

DRUGS (42)
  1. CYCLOPHOSPHAMIDE. [Suspect]
     Active Substance: CYCLOPHOSPHAMIDE
     Indication: TRIPLE NEGATIVE BREAST CANCER
     Dosage: 10000 MILLIGRAM
     Route: 041
     Dates: start: 20180227
  2. PREDNISOLONE. [Concomitant]
     Active Substance: PREDNISOLONE
     Dosage: 10 MILLIGRAM
     Route: 048
     Dates: start: 20180313, end: 20180326
  3. PREDNISOLONE. [Concomitant]
     Active Substance: PREDNISOLONE
     Dosage: 5 MILLIGRAM
     Route: 048
     Dates: start: 20180419
  4. REBAMIPIDE [Concomitant]
     Active Substance: REBAMIPIDE
     Indication: GASTRITIS
     Route: 065
     Dates: start: 20180130
  5. PREDNISOLONE VALERATE ACETATE [Concomitant]
     Active Substance: PREDNISOLONE VALERATE ACETATE
     Indication: URTICARIA
     Route: 061
     Dates: start: 20180130
  6. APREPITANT. [Concomitant]
     Active Substance: APREPITANT
     Route: 048
     Dates: start: 20180410, end: 20180411
  7. DOMPERIDONE [Concomitant]
     Active Substance: DOMPERIDONE
     Route: 065
     Dates: start: 20180313, end: 20180320
  8. DOMPERIDONE [Concomitant]
     Active Substance: DOMPERIDONE
     Route: 065
     Dates: start: 20180327, end: 20180402
  9. DEXAMETHASONE ORAL [Concomitant]
     Active Substance: DEXAMETHASONE
     Indication: GASTRITIS PROPHYLAXIS
     Dosage: 4 MILLIGRAM
     Route: 048
     Dates: start: 20180314, end: 20180316
  10. SODIUM FERROUS CITRATE [Concomitant]
     Active Substance: SODIUM FERROUS CITRATE
     Indication: ANAEMIA
     Route: 048
     Dates: start: 20180327, end: 20180409
  11. DEXAMETHASONE SODIUM PHOSPHATE. [Concomitant]
     Active Substance: DEXAMETHASONE SODIUM PHOSPHATE
     Indication: PROPHYLAXIS OF NAUSEA AND VOMITING
     Dosage: 6.6 MILLIGRAM
     Route: 041
     Dates: start: 20180313, end: 20180313
  12. GRANISETRON HYDROCHLORIDE. [Concomitant]
     Active Substance: GRANISETRON HYDROCHLORIDE
     Route: 065
     Dates: start: 20180410, end: 20180410
  13. CYCLOPHOSPHAMIDE. [Suspect]
     Active Substance: CYCLOPHOSPHAMIDE
     Dosage: 1000 MILLIGRAM
     Route: 041
     Dates: start: 20180410
  14. TEPRENONE [Concomitant]
     Active Substance: TEPRENONE
     Route: 048
     Dates: start: 20180327, end: 20180330
  15. DEXAMETHASONE SODIUM PHOSPHATE. [Concomitant]
     Active Substance: DEXAMETHASONE SODIUM PHOSPHATE
     Dosage: 6.6 MILLIGRAM
     Route: 041
     Dates: start: 20180327, end: 20180327
  16. DOXORUBICIN HYDROCHLORIDE. [Suspect]
     Active Substance: DOXORUBICIN HYDROCHLORIDE
     Dosage: 60 MILLIGRAM/SQ. METER
     Route: 041
     Dates: start: 20180410
  17. PREDNISOLONE. [Concomitant]
     Active Substance: PREDNISOLONE
     Dosage: 12.5 MILLIGRAM
     Route: 048
     Dates: start: 20180327, end: 20180418
  18. TEPRENONE [Concomitant]
     Active Substance: TEPRENONE
     Route: 048
     Dates: start: 20180410, end: 20180413
  19. DEXAMETHASONE ORAL [Concomitant]
     Active Substance: DEXAMETHASONE
     Indication: PROPHYLAXIS OF NAUSEA AND VOMITING
     Dosage: 4 MILLIGRAM
     Route: 048
     Dates: start: 20180227
  20. GRANISETRON HYDROCHLORIDE. [Concomitant]
     Active Substance: GRANISETRON HYDROCHLORIDE
     Indication: PROPHYLAXIS OF NAUSEA AND VOMITING
     Route: 065
     Dates: start: 20180313, end: 20180313
  21. FADIOMYCIN SULFATE/METHYLPREDNISOLONE [Concomitant]
     Indication: URTICARIA
     Route: 061
     Dates: start: 20180130
  22. DOMPERIDONE [Concomitant]
     Active Substance: DOMPERIDONE
     Route: 065
     Dates: start: 20180410, end: 20180413
  23. ABRAXANE [Suspect]
     Active Substance: PACLITAXEL
     Indication: TRIPLE NEGATIVE BREAST CANCER
     Dosage: 125 MILLIGRAM/SQ. METER
     Route: 041
     Dates: start: 20171117
  24. ABRAXANE [Suspect]
     Active Substance: PACLITAXEL
     Dosage: 220 MILLIGRAM/SQ. METER
     Route: 041
     Dates: start: 20180220
  25. ATEZOLIZUMAB. [Suspect]
     Active Substance: ATEZOLIZUMAB
     Indication: TRIPLE NEGATIVE BREAST CANCER
     Dosage: 220 MILLIGRAM
     Route: 041
     Dates: start: 20180220
  26. PREDNISOLONE. [Concomitant]
     Active Substance: PREDNISOLONE
     Dosage: 20 MILLIGRAM
     Route: 048
     Dates: start: 20180302, end: 20180312
  27. TEPRENONE [Concomitant]
     Active Substance: TEPRENONE
     Indication: GASTRITIS PROPHYLAXIS
     Route: 048
     Dates: start: 20180227
  28. DEXAMETHASONE ORAL [Concomitant]
     Active Substance: DEXAMETHASONE
     Dosage: 4 MILLIGRAM
     Route: 048
     Dates: start: 20180410, end: 20180413
  29. SENNOSIDE [Concomitant]
     Active Substance: SENNOSIDES
     Indication: CONSTIPATION PROPHYLAXIS
     Route: 048
     Dates: start: 20180227
  30. DOXORUBICIN HYDROCHLORIDE. [Suspect]
     Active Substance: DOXORUBICIN HYDROCHLORIDE
     Indication: TRIPLE NEGATIVE BREAST CANCER
     Dosage: 60 MILLIGRAM/SQ. METER
     Route: 041
     Dates: start: 20180227
  31. EPINASTINE HYDROCHLORIDE. [Concomitant]
     Active Substance: EPINASTINE HYDROCHLORIDE
     Indication: ECZEMA
     Route: 065
     Dates: start: 20171201
  32. PREDNISOLONE. [Concomitant]
     Active Substance: PREDNISOLONE
     Indication: URTICARIA
     Dosage: 10 MILLIGRAM
     Route: 048
     Dates: start: 20180130
  33. PREDNISOLONE. [Concomitant]
     Active Substance: PREDNISOLONE
     Dosage: 5 MILLIGRAM
     Route: 048
     Dates: start: 20180206, end: 20180301
  34. GRANISETRON HYDROCHLORIDE. [Concomitant]
     Active Substance: GRANISETRON HYDROCHLORIDE
     Route: 065
     Dates: start: 20180327, end: 20180327
  35. ATEZOLIZUMAB. [Suspect]
     Active Substance: ATEZOLIZUMAB
     Route: 041
     Dates: start: 20180227, end: 20180313
  36. DIFLORASONE DIACETATE. [Concomitant]
     Active Substance: DIFLORASONE DIACETATE
     Indication: URTICARIA
     Route: 061
     Dates: start: 20180301
  37. DOMPERIDONE [Concomitant]
     Active Substance: DOMPERIDONE
     Indication: PROPHYLAXIS OF NAUSEA AND VOMITING
     Route: 065
     Dates: start: 20180227
  38. DEXAMETHASONE ORAL [Concomitant]
     Active Substance: DEXAMETHASONE
     Dosage: 4 MILLIGRAM
     Route: 048
     Dates: start: 20180328, end: 20180430
  39. DEXAMETHASONE SODIUM PHOSPHATE. [Concomitant]
     Active Substance: DEXAMETHASONE SODIUM PHOSPHATE
     Dosage: 6.6 MILLIGRAM
     Route: 041
     Dates: start: 20180410, end: 20180410
  40. APREPITANT. [Concomitant]
     Active Substance: APREPITANT
     Indication: PROPHYLAXIS OF NAUSEA AND VOMITING
     Route: 048
     Dates: start: 20180227
  41. APREPITANT. [Concomitant]
     Active Substance: APREPITANT
     Route: 048
     Dates: start: 20180313, end: 20180315
  42. TEPRENONE [Concomitant]
     Active Substance: TEPRENONE
     Route: 048
     Dates: start: 20180313, end: 20180320

REACTIONS (2)
  - Renal infarct [Recovering/Resolving]
  - Thrombosis [Recovering/Resolving]

NARRATIVE: CASE EVENT DATE: 20180411
